FAERS Safety Report 5628991-1 (Version None)
Quarter: 2008Q1

REPORT INFORMATION
  Report Type: 
  Country: None (occurrence: None)
  Receive Date: 20080214
  Receipt Date: 20080204
  Transmission Date: 20080703
  Serious: Yes (Death)
  Sender: FDA-Public Use
  Company Number: 2008-01116

PATIENT
  Age: 56 Year
  Sex: Female

DRUGS (9)
  1. DIPHENHYDRAMINE HCL [Suspect]
  2. FIORICET [Suspect]
  3. FENTANYL [Suspect]
  4. HYDROCODONE BITARTRATE + ACETAMINOPHEN [Suspect]
  5. OXYCODONE HCL AND ACETAMINOPHEN [Suspect]
  6. CARISOPRODOL [Suspect]
  7. CITALOPRAM HYDROBROMIDE [Suspect]
  8. BUPROPION HYDROCHLORIDE [Suspect]
  9. TRAZODONE HYDROCHLORIDE [Suspect]

REACTIONS (1)
  - DEATH [None]
